FAERS Safety Report 9265145 (Version 1)
Quarter: 2013Q2

REPORT INFORMATION
  Report Type: Spontaneous
  Country: US (occurrence: US)
  Receive Date: 20130501
  Receipt Date: 20130501
  Transmission Date: 20140414
  Serious: Yes (Hospitalization, Other)
  Sender: FDA-Public Use
  Company Number: US-BAYER-2013-051320

PATIENT
  Sex: Female

DRUGS (5)
  1. BAYER ASPIRIN REGIMEN ADULT LOW STRENGTH [Suspect]
     Indication: ISCHAEMIC HEART DISEASE PROPHYLAXIS
     Dosage: UNK
     Dates: start: 1988, end: 201208
  2. BAYER ASPIRIN REGIMEN ADULT LOW STRENGTH [Suspect]
     Indication: ISCHAEMIC HEART DISEASE PROPHYLAXIS
     Dosage: 1 DF, QD
     Route: 048
  3. BAYER GENUINE ASPIRIN ORIGINAL STRENGTH [Interacting]
     Dosage: 1 DF, QD
     Route: 048
     Dates: start: 201208, end: 201304
  4. XARELTO [Interacting]
     Indication: ATRIAL FIBRILLATION
     Dosage: UNK
     Dates: start: 201208
  5. DILTIAZEM [Concomitant]

REACTIONS (24)
  - Atrial fibrillation [None]
  - Hypertension [None]
  - Gastric haemorrhage [None]
  - Mouth haemorrhage [None]
  - Blood pressure decreased [None]
  - Eye haemorrhage [None]
  - Transient ischaemic attack [None]
  - Coagulopathy [None]
  - Abdominal pain upper [None]
  - Gastrointestinal pain [None]
  - Faeces discoloured [None]
  - Dyspepsia [None]
  - Asthenia [Not Recovered/Not Resolved]
  - Fatigue [Not Recovered/Not Resolved]
  - Dizziness [None]
  - Constipation [None]
  - Rash [None]
  - Musculoskeletal stiffness [None]
  - Headache [None]
  - Eye pain [None]
  - Eye pruritus [None]
  - Hypoaesthesia [None]
  - Hemiparesis [None]
  - Drug interaction [None]
